FAERS Safety Report 8295395-5 (Version None)
Quarter: 2012Q2

REPORT INFORMATION
  Report Type: 
  Country: None (occurrence: None)
  Receive Date: 20120418
  Receipt Date: 20120404
  Transmission Date: 20120825
  Serious: Yes (Death)
  Sender: FDA-Public Use
  Company Number: AU-ROCHE-1059228

PATIENT
  Sex: Male

DRUGS (2)
  1. PEGASYS [Suspect]
     Indication: HEPATITIS C
  2. RIBAVIRIN [Suspect]
     Indication: HEPATITIS C

REACTIONS (2)
  - DEATH [None]
  - DRUG INEFFECTIVE [None]
